FAERS Safety Report 21795760 (Version 1)
Quarter: 2022Q4

REPORT INFORMATION
  Report Type: Spontaneous
  Country: US (occurrence: US)
  Receive Date: 20221229
  Receipt Date: 20221229
  Transmission Date: 20230113
  Serious: No
  Sender: FDA-Public Use
  Company Number: US-FreseniusKabi-FK202218238

PATIENT

DRUGS (3)
  1. FENTANYL [Suspect]
     Active Substance: FENTANYL
     Indication: Spinal pain
     Route: 037
  2. PRIALT [Concomitant]
     Active Substance: ZICONOTIDE ACETATE
     Indication: Spinal pain
     Route: 037
  3. DILAUDID [Concomitant]
     Active Substance: HYDROMORPHONE HYDROCHLORIDE
     Indication: Spinal pain
     Route: 037

REACTIONS (3)
  - Off label use [Unknown]
  - Frustration tolerance decreased [Unknown]
  - Constipation [Unknown]
